FAERS Safety Report 23218432 (Version 1)
Quarter: 2023Q4

REPORT INFORMATION
  Report Type: Spontaneous
  Country: ES (occurrence: ES)
  Receive Date: 20231122
  Receipt Date: 20231122
  Transmission Date: 20240110
  Serious: Yes (Hospitalization)
  Sender: FDA-Public Use
  Company Number: None

PATIENT
  Age: 57 Year
  Sex: Female

DRUGS (4)
  1. LOPINAVIR\RITONAVIR [Suspect]
     Active Substance: LOPINAVIR\RITONAVIR
     Indication: Pneumonia
     Dosage: 2U CADA 12H
     Route: 048
     Dates: start: 20200327, end: 20200404
  2. AZITHROMYCIN DIHYDRATE [Suspect]
     Active Substance: AZITHROMYCIN DIHYDRATE
     Indication: Coronavirus infection
     Dosage: 500 MG DIA
     Route: 048
     Dates: start: 20200327, end: 20200330
  3. HYDROXYCHLOROQUINE [Suspect]
     Active Substance: HYDROXYCHLOROQUINE
     Indication: Pneumonia
     Dosage: 400 MG DIA
     Route: 048
     Dates: start: 20200327, end: 20200330
  4. TOCILIZUMAB [Suspect]
     Active Substance: TOCILIZUMAB
     Indication: Coronavirus infection
     Dosage: TIME INTERVAL: 1 TOTAL: 600 MG
     Route: 042
     Dates: start: 20200328, end: 20200328

REACTIONS (2)
  - Condition aggravated [Recovering/Resolving]
  - Hepatitis acute [Recovering/Resolving]

NARRATIVE: CASE EVENT DATE: 20200330
